FAERS Safety Report 25923659 (Version 2)
Quarter: 2025Q4

REPORT INFORMATION
  Report Type: Report from Study
  Country: CO (occurrence: CO)
  Receive Date: 20251015
  Receipt Date: 20251116
  Transmission Date: 20260118
  Serious: No
  Sender: ABBVIE
  Company Number: CO-ABBVIE-6501973

PATIENT
  Age: 64 Year
  Sex: Male
  Weight: 60 kg

DRUGS (1)
  1. SKYRIZI [Suspect]
     Active Substance: RISANKIZUMAB-RZAA
     Indication: Psoriasis
     Dosage: FORM STRENGTH: 150 MG. DOSE FORM: SOLUTION FOR INJECTION IN PRE-FILLED SYRINGE
     Route: 058
     Dates: start: 20220405, end: 20250410

REACTIONS (3)
  - Toothache [Not Recovered/Not Resolved]
  - Weight decreased [Not Recovered/Not Resolved]
  - Stress [Not Recovered/Not Resolved]

NARRATIVE: CASE EVENT DATE: 20250101
